FAERS Safety Report 4740315-0 (Version None)
Quarter: 2005Q3

REPORT INFORMATION
  Report Type: 
  Country: None (occurrence: None)
  Receive Date: 20050729
  Receipt Date: 20050513
  Transmission Date: 20060218
  Serious: Yes (Hospitalization)
  Sender: FDA-Public Use
  Company Number: RB-1626-2005

PATIENT
  Age: 36 Year
  Sex: Female
  Weight: 77.5651 kg

DRUGS (6)
  1. SUBOXONE [Suspect]
     Indication: DRUG DEPENDENCE
     Dosage: 8 MG QD SL
     Route: 060
     Dates: start: 20050224
  2. SUBOXONE [Suspect]
     Indication: DRUG DEPENDENCE
     Dosage: 8 MG TID SL
     Route: 060
     Dates: start: 20050301, end: 20050320
  3. SUBOXONE [Suspect]
     Indication: DRUG DEPENDENCE
     Dosage: 8 MG QID SL
     Route: 060
     Dates: start: 20050320, end: 20050323
  4. SUBOXONE [Suspect]
     Indication: DRUG DEPENDENCE
     Dosage: 8 MG TID SL
     Route: 060
     Dates: start: 20050323, end: 20050325
  5. TRIVORA-21 [Concomitant]
  6. EFFEXOR [Concomitant]

REACTIONS (1)
  - LIVER FUNCTION TEST ABNORMAL [None]
